FAERS Safety Report 8055956-5 (Version None)
Quarter: 2012Q1

REPORT INFORMATION
  Report Type: 
  Country: None (occurrence: None)
  Receive Date: 20120119
  Receipt Date: 20120109
  Transmission Date: 20120608
  Serious: Yes (Hospitalization)
  Sender: FDA-Public Use
  Company Number: US-BAYER-2010-001007

PATIENT
  Age: 21 Year
  Sex: Female
  Weight: 74.83 kg

DRUGS (3)
  1. YASMIN [Suspect]
     Dosage: UNK
     Route: 048
     Dates: start: 20030101
  2. LEVOXYL [Concomitant]
     Dosage: 0.125 MG, UNK
  3. TERBINAFINE HCL [Concomitant]
     Dosage: 250 MG, UNK

REACTIONS (2)
  - BILIARY DYSKINESIA [None]
  - GALLBLADDER INJURY [None]
